FAERS Safety Report 22345228 (Version 1)
Quarter: 2023Q2

REPORT INFORMATION
  Report Type: Spontaneous
  Country: PT (occurrence: PT)
  Receive Date: 20230519
  Receipt Date: 20230519
  Transmission Date: 20230721
  Serious: Yes (Other)
  Sender: FDA-Public Use
  Company Number: PT-EMA-DD-20230426-6644851-083942

PATIENT
  Sex: Female

DRUGS (3)
  1. TRASTUZUMAB [Suspect]
     Active Substance: TRASTUZUMAB
     Indication: Metaplastic breast carcinoma
     Dosage: UNKNOWN
     Route: 065
  2. PERTUZUMAB [Suspect]
     Active Substance: PERTUZUMAB
     Indication: Metaplastic breast carcinoma
     Dosage: UNKNOWN
     Route: 065
  3. DOCETAXEL [Suspect]
     Active Substance: DOCETAXEL
     Indication: Metaplastic breast carcinoma
     Dosage: UNKNOWN
     Route: 065

REACTIONS (2)
  - Metaplastic breast carcinoma [Recovering/Resolving]
  - Pleomorphic adenoma [Recovering/Resolving]
